FAERS Safety Report 20012378 (Version 1)
Quarter: 2021Q4

REPORT INFORMATION
  Report Type: Spontaneous
  Country: GB (occurrence: GB)
  Receive Date: 20211029
  Receipt Date: 20211029
  Transmission Date: 20220303
  Serious: Yes (Other)
  Sender: FDA-Public Use
  Company Number: GB-ASCEND THERAPEUTICS US, LLC-2121150

PATIENT
  Sex: Female

DRUGS (4)
  1. ESTROGEL [Suspect]
     Active Substance: ESTRADIOL
     Indication: Product used for unknown indication
     Route: 065
  2. ESTROGEL [Suspect]
     Active Substance: ESTRADIOL
  3. ESTRADIOL [Suspect]
     Active Substance: ESTRADIOL
     Route: 065
  4. ESTRADIOL [Suspect]
     Active Substance: ESTRADIOL
     Route: 062
     Dates: start: 2021

REACTIONS (9)
  - Menopausal symptoms [Unknown]
  - Night sweats [Unknown]
  - Anxiety [Unknown]
  - Tinnitus [Unknown]
  - Palpitations [Unknown]
  - Arthralgia [Unknown]
  - Panic attack [Unknown]
  - Hyperhidrosis [Unknown]
  - Therapeutic product effect decreased [None]
